FAERS Safety Report 16192537 (Version 2)
Quarter: 2019Q2

REPORT INFORMATION
  Report Type: Spontaneous
  Country: US (occurrence: US)
  Receive Date: 20190412
  Receipt Date: 20190509
  Transmission Date: 20190711
  Serious: No
  Sender: FDA-Public Use
  Company Number: US-SA-2019SA099875

PATIENT
  Sex: Female
  Weight: 68 kg

DRUGS (1)
  1. AVALIDE [Suspect]
     Active Substance: HYDROCHLOROTHIAZIDE\IRBESARTAN
     Indication: PRODUCT USED FOR UNKNOWN INDICATION
     Dosage: 300/12.5 MG AT A.M
     Route: 065

REACTIONS (4)
  - Dry mouth [Unknown]
  - Arthritis [Unknown]
  - Thyroid disorder [Unknown]
  - Tinnitus [Unknown]

NARRATIVE: CASE EVENT DATE: 2018
